FAERS Safety Report 22260566 (Version 1)
Quarter: 2023Q2

REPORT INFORMATION
  Report Type: Spontaneous
  Country: GB (occurrence: None)
  Receive Date: 20230427
  Receipt Date: 20230427
  Transmission Date: 20230722
  Serious: Yes (Other)
  Sender: FDA-Public Use
  Company Number: 2023A094533

PATIENT
  Age: 22 Year
  Sex: Female
  Weight: 55 kg

DRUGS (1)
  1. SYMBICORT [Suspect]
     Active Substance: BUDESONIDE\FORMOTEROL FUMARATE DIHYDRATE
     Indication: Cough variant asthma
     Dosage: TWICE A DAY FOR TWO WEEKS THEN ONCE A DAY AT NIGHT FOR ONE MONTH; ;
     Dates: start: 20230328

REACTIONS (3)
  - Gastrooesophageal reflux disease [Not Recovered/Not Resolved]
  - Orthostatic hypotension [Not Recovered/Not Resolved]
  - Tachycardia [Recovered/Resolved]
